FAERS Safety Report 7105117-9 (Version None)
Quarter: 2010Q4

REPORT INFORMATION
  Report Type: 
  Country: None (occurrence: None)
  Receive Date: 20101116
  Receipt Date: 20101109
  Transmission Date: 20110411
  Serious: Yes (Death)
  Sender: FDA-Public Use
  Company Number: GB-PFIZER INC-2010146553

PATIENT
  Age: 67 Year
  Sex: Female

DRUGS (2)
  1. IBUPROFEN [Suspect]
  2. ACETYLSALICYLIC ACID [Concomitant]

REACTIONS (6)
  - CARDIAC ARREST [None]
  - CONFUSIONAL STATE [None]
  - DEAFNESS [None]
  - DRUG TOXICITY [None]
  - HYPERVENTILATION [None]
  - OVERDOSE [None]
